FAERS Safety Report 23911293 (Version 1)
Quarter: 2024Q2

REPORT INFORMATION
  Report Type: Spontaneous
  Country: CN (occurrence: CN)
  Receive Date: 20240528
  Receipt Date: 20240528
  Transmission Date: 20240716
  Serious: Yes (Life-Threatening, Other)
  Sender: FDA-Public Use
  Company Number: CN-BAYER-2024A077396

PATIENT
  Age: 53 Year
  Sex: Female
  Weight: 68 kg

DRUGS (2)
  1. ULTRAVIST [Suspect]
     Active Substance: IOPROMIDE
     Indication: Computerised tomogram abdomen
     Dosage: 70 ML, ONCE
     Route: 042
     Dates: start: 20240522, end: 20240522
  2. ULTRAVIST [Suspect]
     Active Substance: IOPROMIDE
     Indication: Stomach mass

REACTIONS (7)
  - Dizziness [Recovering/Resolving]
  - Oropharyngeal pain [Recovering/Resolving]
  - Dysphonia [Not Recovered/Not Resolved]
  - Chest discomfort [Recovering/Resolving]
  - Blood pressure systolic increased [None]
  - Heart rate decreased [None]
  - Blood pressure diastolic increased [None]

NARRATIVE: CASE EVENT DATE: 20240522
